FAERS Safety Report 5578692-3 (Version None)
Quarter: 2008Q1

REPORT INFORMATION
  Report Type: 
  Country: None (occurrence: None)
  Receive Date: 20080102
  Receipt Date: 20071220
  Transmission Date: 20080703
  Serious: Yes (Hospitalization)
  Sender: FDA-Public Use
  Company Number: FR-JNJFOC-20071205806

PATIENT
  Sex: Female

DRUGS (9)
  1. ACETAMINOPHEN AND TRAMADOL HCL [Suspect]
     Indication: RHEUMATOID ARTHRITIS
     Route: 048
     Dates: start: 20071025, end: 20071029
  2. NOVATREX [Suspect]
     Indication: RHEUMATOID ARTHRITIS
     Route: 065
  3. SALAZOPYRINE [Suspect]
     Indication: RHEUMATOID ARTHRITIS
     Route: 048
  4. MEDIATENSYL [Concomitant]
     Route: 065
  5. ACTONEL [Concomitant]
     Route: 065
  6. FUROSEMIDE [Concomitant]
     Route: 065
  7. PREVISCAN [Concomitant]
     Route: 065
  8. CORTANCYL [Concomitant]
     Route: 065
  9. OGAST [Concomitant]
     Route: 065

REACTIONS (4)
  - AGRANULOCYTOSIS [None]
  - CONJUNCTIVAL HAEMORRHAGE [None]
  - CONJUNCTIVITIS [None]
  - RASH [None]
